FAERS Safety Report 11302821 (Version 1)
Quarter: 2015Q3

REPORT INFORMATION
  Report Type: Spontaneous
  Country: US (occurrence: None)
  Receive Date: 20150723
  Receipt Date: 20150723
  Transmission Date: 20151125
  Serious: Yes (Life-Threatening, Other)
  Sender: FDA-Public Use
  Company Number: None

PATIENT
  Age: 52 Year
  Sex: Male
  Weight: 52.16 kg

DRUGS (3)
  1. METHADONE [Suspect]
     Active Substance: METHADONE HYDROCHLORIDE
     Indication: PAIN
     Route: 048
     Dates: start: 20150702, end: 20150721
  2. IB PROPHEN [Concomitant]
  3. DAILY VITAMIN [Concomitant]
     Active Substance: VITAMINS

REACTIONS (6)
  - Overdose [None]
  - Nausea [None]
  - Impaired work ability [None]
  - Malaise [None]
  - Pain [None]
  - Headache [None]

NARRATIVE: CASE EVENT DATE: 20150721
